FAERS Safety Report 13734985 (Version 1)
Quarter: 2017Q3

REPORT INFORMATION
  Report Type: Spontaneous
  Country: US (occurrence: US)
  Receive Date: 20170710
  Receipt Date: 20170710
  Transmission Date: 20171127
  Serious: No
  Sender: FDA-Public Use
  Company Number: US-ASTRAZENECA-2017SE69067

PATIENT
  Age: 61 Year
  Sex: Female
  Weight: 94.3 kg

DRUGS (6)
  1. BYDUREON [Suspect]
     Active Substance: EXENATIDE
     Indication: TYPE 2 DIABETES MELLITUS
     Route: 058
     Dates: start: 2017, end: 2017
  2. ROSUVASTATIN CALCIUM. [Suspect]
     Active Substance: ROSUVASTATIN CALCIUM
     Indication: BLOOD CHOLESTEROL ABNORMAL
     Route: 048
     Dates: start: 20170608
  3. NOVOLOG [Concomitant]
     Active Substance: INSULIN ASPART
     Indication: TYPE 2 DIABETES MELLITUS
     Dosage: 8 AND 13 UNITS THREE TIMES A DAY
     Route: 058
     Dates: start: 20170608
  4. VITAMIN D [Concomitant]
     Active Substance: CHOLECALCIFEROL
     Indication: SUPPLEMENTATION THERAPY
     Route: 048
  5. LOSARTAN. [Concomitant]
     Active Substance: LOSARTAN
     Indication: RENAL DISORDER
     Route: 048
     Dates: start: 2012
  6. LANTUS [Concomitant]
     Active Substance: INSULIN GLARGINE
     Indication: TYPE 2 DIABETES MELLITUS
     Route: 058

REACTIONS (13)
  - Swelling [Recovering/Resolving]
  - Nausea [Recovering/Resolving]
  - Breath odour [Recovering/Resolving]
  - Injection site pruritus [Not Recovered/Not Resolved]
  - Chest pain [Recovered/Resolved]
  - Hyperchlorhydria [Recovering/Resolving]
  - Eructation [Recovering/Resolving]
  - Drug administration error [Recovered/Resolved]
  - Weight increased [Recovering/Resolving]
  - Injection site pain [Not Recovered/Not Resolved]
  - Chest discomfort [Recovered/Resolved]
  - Injection site nodule [Not Recovered/Not Resolved]
  - Diarrhoea [Recovering/Resolving]

NARRATIVE: CASE EVENT DATE: 2017
